FAERS Safety Report 25407344 (Version 3)
Quarter: 2025Q3

REPORT INFORMATION
  Report Type: Spontaneous
  Country: US (occurrence: US)
  Receive Date: 20250606
  Receipt Date: 20250810
  Transmission Date: 20251021
  Serious: No
  Sender: ALEXION PHARMACEUTICALS
  Company Number: US-AstraZeneca-CH-00881664A

PATIENT
  Sex: Male

DRUGS (1)
  1. STRENSIQ [Suspect]
     Active Substance: ASFOTASE ALFA
     Indication: Hypophosphatasia

REACTIONS (6)
  - Joint injury [Unknown]
  - Limb injury [Unknown]
  - Migraine [Unknown]
  - Headache [Unknown]
  - Brain fog [Unknown]
  - Fatigue [Unknown]
